FAERS Safety Report 10230879 (Version 1)
Quarter: 2014Q2

REPORT INFORMATION
  Report Type: Spontaneous
  Country: ES (occurrence: ES)
  Receive Date: 20140611
  Receipt Date: 20140611
  Transmission Date: 20141212
  Serious: Yes (Hospitalization)
  Sender: FDA-Public Use
  Company Number: ES-SA-2014SA070734

PATIENT
  Age: 15 Year
  Sex: Female

DRUGS (4)
  1. CLEXANE [Suspect]
     Indication: PROPHYLAXIS
     Dosage: 40MG
     Route: 058
     Dates: start: 20130703, end: 20130710
  2. DEXKETOPROFEN [Suspect]
     Indication: PAIN
     Dosage: 50MG/8H
     Route: 042
     Dates: start: 20130703, end: 20130708
  3. PARACETAMOL [Concomitant]
     Indication: PAIN
     Dosage: 1GR/8H
     Route: 048
     Dates: start: 20130703
  4. METAMIZOLE [Concomitant]
     Indication: PAIN
     Dosage: 1-1-1
     Route: 048
     Dates: start: 20130703

REACTIONS (1)
  - Hepatitis [Recovered/Resolved]
